FAERS Safety Report 12299741 (Version 1)
Quarter: 2016Q2

REPORT INFORMATION
  Report Type: Spontaneous
  Country: VE (occurrence: VE)
  Receive Date: 20160425
  Receipt Date: 20160425
  Transmission Date: 20160815
  Serious: Yes (Other)
  Sender: FDA-Public Use
  Company Number: PHHY2010VE61326

PATIENT
  Age: 53 Year
  Sex: Female

DRUGS (6)
  1. DIOVAN [Suspect]
     Active Substance: VALSARTAN
     Dosage: 120 MG, QD
     Route: 048
  2. DIOVAN HCT [Suspect]
     Active Substance: HYDROCHLOROTHIAZIDE\VALSARTAN
     Indication: HYPERTENSION
     Dosage: 1 DF (80 MG VAL/ 12.5 MG HCT), QD
     Route: 048
     Dates: start: 2007, end: 20100909
  3. DIOVAN [Suspect]
     Active Substance: VALSARTAN
     Dosage: 160 MG, DAILY
     Route: 048
     Dates: start: 20100909
  4. VALSARTAN. [Suspect]
     Active Substance: VALSARTAN
     Indication: HYPERTENSION
     Route: 065
  5. CALCIUM [Concomitant]
     Active Substance: CALCIUM
     Indication: OSTEOPENIA
     Route: 065
  6. DIOVAN [Suspect]
     Active Substance: VALSARTAN
     Indication: HYPERTENSION
     Dosage: 80 MG, EVERY TWO DAYS
     Route: 048
     Dates: start: 2007, end: 20100909

REACTIONS (6)
  - Blood pressure inadequately controlled [Unknown]
  - Gastritis [Unknown]
  - Hot flush [Unknown]
  - Blood pressure increased [Recovered/Resolved]
  - Deafness [Unknown]
  - Drug ineffective [Unknown]

NARRATIVE: CASE EVENT DATE: 20100909
